FAERS Safety Report 22121100 (Version 2)
Quarter: 2023Q2

REPORT INFORMATION
  Report Type: Spontaneous
  Country: US (occurrence: US)
  Receive Date: 20230321
  Receipt Date: 20230525
  Transmission Date: 20230722
  Serious: Yes (Life-Threatening, Other)
  Sender: FDA-Public Use
  Company Number: US-PFIZER INC-202300119011

PATIENT
  Age: 70 Year
  Sex: Female
  Weight: 68.027 kg

DRUGS (1)
  1. NURTEC ODT [Suspect]
     Active Substance: RIMEGEPANT SULFATE
     Indication: Migraine
     Dosage: 75 MG, ALTERNATE DAY (IN AM)
     Route: 048
     Dates: start: 20230308, end: 20230315

REACTIONS (7)
  - Suicidal ideation [Recovered/Resolved]
  - Disease recurrence [Unknown]
  - Drug ineffective [Unknown]
  - Depression [Unknown]
  - Abnormal behaviour [Unknown]
  - Insomnia [Unknown]
  - Hypoacusis [Unknown]

NARRATIVE: CASE EVENT DATE: 20230301
